FAERS Safety Report 16042253 (Version 1)
Quarter: 2019Q1

REPORT INFORMATION
  Report Type: Spontaneous
  Country: US (occurrence: US)
  Receive Date: 20190208
  Receipt Date: 20190208
  Transmission Date: 20190418
  Serious: Yes (Hospitalization)
  Sender: FDA-Public Use
  Company Number: None

PATIENT
  Age: 63 Year
  Sex: Female
  Weight: 61.69 kg

DRUGS (14)
  1. FAMOTIDINE. [Concomitant]
     Active Substance: FAMOTIDINE
  2. PROTONIX [Concomitant]
     Active Substance: PANTOPRAZOLE SODIUM
  3. FENTANYL. [Concomitant]
     Active Substance: FENTANYL
  4. LOVENOX [Concomitant]
     Active Substance: ENOXAPARIN SODIUM
  5. SERTRALINE [Concomitant]
     Active Substance: SERTRALINE HYDROCHLORIDE
  6. HYDROMORPHONE [Concomitant]
     Active Substance: HYDROMORPHONE
  7. CAPECITABINE. [Suspect]
     Active Substance: CAPECITABINE
     Indication: COLON CANCER
     Route: 048
     Dates: start: 20160311
  8. SUDAFED [Concomitant]
     Active Substance: PSEUDOEPHEDRINE HYDROCHLORIDE
  9. IBUPROFEN. [Concomitant]
     Active Substance: IBUPROFEN
  10. DURAGESIC [Concomitant]
     Active Substance: FENTANYL
  11. OXYBUTYNIN. [Concomitant]
     Active Substance: OXYBUTYNIN CHLORIDE
  12. MULTIVITAMINS [Concomitant]
     Active Substance: VITAMINS
  13. ONDANSETRON [Concomitant]
     Active Substance: ONDANSETRON
  14. LORAZEPAM. [Concomitant]
     Active Substance: LORAZEPAM

REACTIONS (1)
  - Abdominal pain upper [None]
